FAERS Safety Report 10021705 (Version 1)
Quarter: 2014Q1

REPORT INFORMATION
  Report Type: Spontaneous
  Country: US (occurrence: None)
  Receive Date: 20140313
  Receipt Date: 20140313
  Transmission Date: 20141002
  Serious: Yes (Other)
  Sender: FDA-Public Use
  Company Number: AG-2014-000727

PATIENT
  Sex: Male

DRUGS (1)
  1. CHLORAMBUCIL (UKNOWN) [Suspect]
     Indication: SYMPATHETIC OPHTHALMIA

REACTIONS (1)
  - Immune reconstitution inflammatory syndrome associated Kaposi^s sarcoma [None]
